FAERS Safety Report 14317189 (Version 6)
Quarter: 2018Q2

REPORT INFORMATION
  Report Type: Report from Study
  Country: FR (occurrence: FR)
  Receive Date: 20171222
  Receipt Date: 20180412
  Transmission Date: 20180711
  Serious: Yes (Other)
  Sender: FDA-Public Use
  Company Number: FR-ROCHE-2040509

PATIENT
  Age: 32 Year
  Sex: Male
  Weight: 91 kg

DRUGS (5)
  1. BEVACIZUMAB. [Suspect]
     Active Substance: BEVACIZUMAB
     Indication: NEOPLASM MALIGNANT
     Route: 042
     Dates: start: 20171128
  2. ETOPOSIDE. [Suspect]
     Active Substance: ETOPOSIDE
     Indication: NEOPLASM MALIGNANT
     Route: 042
     Dates: start: 20171129, end: 20171202
  3. CARBOPLATIN. [Suspect]
     Active Substance: CARBOPLATIN
     Indication: NEOPLASM MALIGNANT
     Dosage: 4 AUC/CYCLE
     Route: 042
     Dates: start: 20171129, end: 20171203
  4. RAMIPRIL. [Concomitant]
     Active Substance: RAMIPRIL
     Route: 065
     Dates: start: 2015
  5. TAXOL [Concomitant]
     Active Substance: PACLITAXEL

REACTIONS (5)
  - Hepatocellular injury [Recovered/Resolved]
  - Enterocolitis [Recovered/Resolved]
  - Left ventricular dysfunction [Unknown]
  - Small intestinal obstruction [Unknown]
  - Proteinuria [Unknown]

NARRATIVE: CASE EVENT DATE: 20171202
